FAERS Safety Report 5609120-7 (Version None)
Quarter: 2008Q1

REPORT INFORMATION
  Report Type: 
  Country: None (occurrence: None)
  Receive Date: 20080130
  Receipt Date: 20080130
  Transmission Date: 20080703
  Serious: Yes (Death)
  Sender: FDA-Public Use
  Company Number: None

PATIENT
  Age: 58 Year
  Sex: Female
  Weight: 111.1313 kg

DRUGS (1)
  1. FENTANYL TRANSDERMAL SYSTEM [Suspect]
     Indication: RHEUMATOID ARTHRITIS
     Dosage: 1 PATCH EV. 3 DAYS TRANSDERMAL
     Route: 062
     Dates: start: 20071001, end: 20071201

REACTIONS (3)
  - ASTHENIA [None]
  - CARDIAC DISORDER [None]
  - DISORIENTATION [None]
